FAERS Safety Report 24006682 (Version 2)
Quarter: 2024Q3

REPORT INFORMATION
  Report Type: Report from Study
  Country: US (occurrence: US)
  Receive Date: 20240624
  Receipt Date: 20240702
  Transmission Date: 20241017
  Serious: Yes (Other)
  Sender: ABBVIE
  Company Number: US-ABBVIE-5811208

PATIENT
  Age: 49 Year
  Sex: Male
  Weight: 111 kg

DRUGS (1)
  1. RINVOQ [Suspect]
     Active Substance: UPADACITINIB
     Indication: Psoriatic arthropathy
     Dosage: FORM STRENGTH: 15 MILLIGRAM
     Route: 048
     Dates: start: 20220822, end: 202406

REACTIONS (1)
  - Ligament rupture [Recovering/Resolving]

NARRATIVE: CASE EVENT DATE: 20240501
